FAERS Safety Report 14196944 (Version 1)
Quarter: 2017Q4

REPORT INFORMATION
  Report Type: Spontaneous
  Country: US (occurrence: US)
  Receive Date: 20171116
  Receipt Date: 20171116
  Transmission Date: 20180321
  Serious: No
  Sender: FDA-Public Use
  Company Number: US-BAYER-2017-221510

PATIENT
  Age: 30 Year
  Sex: Female

DRUGS (1)
  1. ALEVE [Suspect]
     Active Substance: NAPROXEN SODIUM
     Indication: DYSMENORRHOEA
     Dosage: 3 DF, ONCE
     Route: 048
     Dates: start: 20071114

REACTIONS (2)
  - Drug administration error [Recovered/Resolved]
  - Drug ineffective for unapproved indication [Recovered/Resolved]

NARRATIVE: CASE EVENT DATE: 20171114
